FAERS Safety Report 7620351-7 (Version None)
Quarter: 2011Q3

REPORT INFORMATION
  Report Type: 
  Country: None (occurrence: None)
  Receive Date: 20110718
  Receipt Date: 20110718
  Transmission Date: 20111222
  Serious: Yes (Hospitalization, Other)
  Sender: FDA-Public Use
  Company Number: None

PATIENT
  Age: 66 Year
  Sex: Female
  Weight: 95.254 kg

DRUGS (1)
  1. VICTOZA [Suspect]
     Indication: DIABETES MELLITUS
     Dosage: 1 INJECTION
     Route: 042
     Dates: start: 20110503, end: 20110713

REACTIONS (2)
  - CEREBROVASCULAR ACCIDENT [None]
  - THYROID NEOPLASM [None]
